FAERS Safety Report 15415251 (Version 1)
Quarter: 2018Q3

REPORT INFORMATION
  Report Type: Spontaneous
  Country: JP (occurrence: JP)
  Receive Date: 20180921
  Receipt Date: 20180921
  Transmission Date: 20181010
  Serious: Yes (Hospitalization, Other)
  Sender: FDA-Public Use
  Company Number: JP-MYLANLABS-2018M1068570

PATIENT
  Age: 77 Year
  Sex: Male

DRUGS (4)
  1. VORICONAZOLE. [Suspect]
     Active Substance: VORICONAZOLE
     Indication: SCEDOSPORIUM INFECTION
     Route: 048
     Dates: start: 201601
  2. BETAMETHASONE. [Suspect]
     Active Substance: BETAMETHASONE
     Indication: RHEUMATOID ARTHRITIS
     Route: 048
  3. BETAMETHASONE. [Suspect]
     Active Substance: BETAMETHASONE
     Route: 048
  4. TACROLIMUS. [Suspect]
     Active Substance: TACROLIMUS
     Indication: RHEUMATOID ARTHRITIS
     Route: 065

REACTIONS (3)
  - Hepatic function abnormal [Unknown]
  - Scedosporium infection [Recovered/Resolved]
  - Fungal skin infection [Recovered/Resolved]
